FAERS Safety Report 9388660 (Version 2)
Quarter: 2014Q2

REPORT INFORMATION
  Report Type: Spontaneous
  Country: US (occurrence: US)
  Receive Date: 20130708
  Receipt Date: 20140515
  Transmission Date: 20141212
  Serious: Yes (Hospitalization, Other)
  Sender: FDA-Public Use
  Company Number: US-GLAXOSMITHKLINE-A1031245A

PATIENT
  Age: 74 Year
  Sex: Male
  Weight: 102.3 kg

DRUGS (1)
  1. AVANDIA [Suspect]
     Indication: TYPE 2 DIABETES MELLITUS
     Dosage: 4MG PER DAY
     Route: 048

REACTIONS (7)
  - Cardiac arrest [Unknown]
  - Atrial fibrillation [Unknown]
  - Sick sinus syndrome [Unknown]
  - Cardiac failure congestive [Unknown]
  - Cerebrovascular accident [Unknown]
  - Ischaemic cardiomyopathy [Unknown]
  - Myocardial infarction [Unknown]
